FAERS Safety Report 23270724 (Version 2)
Quarter: 2024Q2

REPORT INFORMATION
  Report Type: Spontaneous
  Country: US (occurrence: None)
  Receive Date: 20231207
  Receipt Date: 20240610
  Transmission Date: 20240716
  Serious: Yes (Hospitalization)
  Sender: FDA-Public Use
  Company Number: US-ROCHE-3465855

PATIENT
  Age: 64 Year
  Sex: Female

DRUGS (1)
  1. PERJETA [Suspect]
     Active Substance: PERTUZUMAB
     Indication: Breast cancer female
     Dosage: STRENGTH : 420MG/14ML
     Route: 042
     Dates: start: 202311

REACTIONS (2)
  - Supraventricular tachycardia [Unknown]
  - Dehydration [Unknown]

NARRATIVE: CASE EVENT DATE: 20231109
